FAERS Safety Report 8279310-6 (Version None)
Quarter: 2012Q2

REPORT INFORMATION
  Report Type: 
  Country: None (occurrence: None)
  Receive Date: 20120412
  Receipt Date: 20110401
  Transmission Date: 20120825
  Serious: No
  Sender: FDA-Public Use
  Company Number: US-ASTRAZENECA-2011SE15698

PATIENT
  Age: 58 Year
  Sex: Female

DRUGS (2)
  1. PRILOSEC [Suspect]
     Route: 048
  2. NEXIUM [Suspect]
     Route: 048

REACTIONS (5)
  - DRUG INEFFECTIVE [None]
  - GASTRIC DISORDER [None]
  - ABDOMINAL DISTENSION [None]
  - DYSPEPSIA [None]
  - BACK PAIN [None]
